FAERS Safety Report 13238452 (Version 2)
Quarter: 2017Q2

REPORT INFORMATION
  Report Type: Spontaneous
  Country: CA (occurrence: CA)
  Receive Date: 20170216
  Receipt Date: 20170627
  Transmission Date: 20170830
  Serious: Yes (Life-Threatening, Hospitalization)
  Sender: FDA-Public Use
  Company Number: CA-CONCORDIA PHARMACEUTICALS INC.-GSH201702-001124

PATIENT
  Age: 8 Year
  Sex: Female

DRUGS (23)
  1. METHOTREXATE. [Suspect]
     Active Substance: METHOTREXATE
     Dosage: WEEKLY
     Route: 065
  2. ABATACEPT [Suspect]
     Active Substance: ABATACEPT
     Indication: JUVENILE IDIOPATHIC ARTHRITIS
     Dosage: MONTHLY
     Route: 042
     Dates: end: 201009
  3. ANAKINRA [Suspect]
     Active Substance: ANAKINRA
     Indication: JUVENILE IDIOPATHIC ARTHRITIS
     Dosage: DAILY
     Route: 058
     Dates: start: 200808, end: 201007
  4. INFLIXIMAB [Suspect]
     Active Substance: INFLIXIMAB
     Indication: JUVENILE IDIOPATHIC ARTHRITIS
     Dosage: WEEKLY
     Route: 042
  5. NAPROXEN. [Suspect]
     Active Substance: NAPROXEN
     Indication: JUVENILE IDIOPATHIC ARTHRITIS
     Route: 065
     Dates: start: 2005
  6. ORENCIA [Suspect]
     Active Substance: ABATACEPT
     Indication: JUVENILE IDIOPATHIC ARTHRITIS
     Route: 042
     Dates: start: 201007, end: 201009
  7. ENBREL [Suspect]
     Active Substance: ETANERCEPT
     Indication: JUVENILE IDIOPATHIC ARTHRITIS
     Route: 058
     Dates: start: 200703, end: 200706
  8. ACTEMRA [Suspect]
     Active Substance: TOCILIZUMAB
     Indication: JUVENILE IDIOPATHIC ARTHRITIS
     Dosage: EVERY OTHER WEEK
     Route: 042
     Dates: start: 20120227, end: 201203
  9. ETANERCEPT [Suspect]
     Active Substance: ETANERCEPT
     Indication: JUVENILE IDIOPATHIC ARTHRITIS
     Dosage: WEEKLY
     Route: 058
  10. IMMUNE GLOBULIN (HUMAN) [Suspect]
     Active Substance: HUMAN IMMUNOGLOBULIN G
     Indication: JUVENILE IDIOPATHIC ARTHRITIS
     Route: 042
  11. PREDNISONE. [Suspect]
     Active Substance: PREDNISONE
     Indication: JUVENILE IDIOPATHIC ARTHRITIS
     Dosage: TWICE A DAY
     Route: 048
     Dates: start: 200510, end: 201501
  12. PREDNISONE. [Suspect]
     Active Substance: PREDNISONE
     Dosage: TWICE A DAY
     Route: 048
  13. IMMUNE GLOBULIN (HUMAN) [Suspect]
     Active Substance: HUMAN IMMUNOGLOBULIN G
     Route: 042
  14. INFLIXIMAB [Suspect]
     Active Substance: INFLIXIMAB
     Route: 065
     Dates: start: 200711, end: 200803
  15. FOLIC ACID. [Concomitant]
     Active Substance: FOLIC ACID
  16. HYDROXYCHLOROQUINE [Suspect]
     Active Substance: HYDROXYCHLOROQUINE
     Indication: JUVENILE IDIOPATHIC ARTHRITIS
     Dosage: DAILY
     Route: 048
     Dates: end: 2014
  17. ETANERCEPT [Suspect]
     Active Substance: ETANERCEPT
     Dosage: WEEKLY
     Route: 058
     Dates: end: 200706
  18. INFLIXIMAB [Suspect]
     Active Substance: INFLIXIMAB
     Dosage: WEEKLY
     Route: 042
  19. TRIAMCINOLONE [Suspect]
     Active Substance: TRIAMCINOLONE
     Route: 065
     Dates: end: 2014
  20. ADALIMUMAB [Suspect]
     Active Substance: ADALIMUMAB
     Indication: JUVENILE IDIOPATHIC ARTHRITIS
     Route: 065
  21. METHOTREXATE. [Suspect]
     Active Substance: METHOTREXATE
     Indication: JUVENILE IDIOPATHIC ARTHRITIS
     Dosage: WEEKLY
     Route: 058
     Dates: start: 2005, end: 2014
  22. SULFASALAZINE. [Suspect]
     Active Substance: SULFASALAZINE
     Indication: JUVENILE IDIOPATHIC ARTHRITIS
     Dosage: DAILY
     Route: 048
     Dates: end: 2014
  23. TRIAMCINOLONE [Suspect]
     Active Substance: TRIAMCINOLONE
     Indication: JUVENILE IDIOPATHIC ARTHRITIS
     Route: 065
     Dates: start: 201402

REACTIONS (31)
  - Loss of personal independence in daily activities [Unknown]
  - Diarrhoea [Unknown]
  - Pyrexia [Unknown]
  - Adrenal insufficiency [Not Recovered/Not Resolved]
  - Immunodeficiency [Recovered/Resolved]
  - Septic shock [Not Recovered/Not Resolved]
  - Drug ineffective [Unknown]
  - Synovitis [Not Recovered/Not Resolved]
  - Wheelchair user [Not Recovered/Not Resolved]
  - Hypocalcaemia [Recovered/Resolved]
  - Hypotension [Unknown]
  - Liver function test abnormal [Recovered/Resolved]
  - Obesity [Unknown]
  - Red blood cell sedimentation rate increased [Unknown]
  - Psoriasis [Unknown]
  - Loss of consciousness [Recovered/Resolved]
  - Hypokalaemia [Recovered/Resolved]
  - Therapy non-responder [Unknown]
  - Juvenile idiopathic arthritis [Not Recovered/Not Resolved]
  - Polyarthritis [Unknown]
  - Pleural effusion [Recovered/Resolved]
  - C-reactive protein increased [Unknown]
  - Condition aggravated [Not Recovered/Not Resolved]
  - Drug intolerance [Unknown]
  - Mobility decreased [Unknown]
  - Vomiting [Recovered/Resolved]
  - Nausea [Unknown]
  - Gastroenteritis viral [Recovered/Resolved]
  - Antibody test positive [Not Recovered/Not Resolved]
  - Bone density decreased [Not Recovered/Not Resolved]
  - Dizziness [Unknown]

NARRATIVE: CASE EVENT DATE: 20120301
